FAERS Safety Report 9101773 (Version 1)
Quarter: 2013Q1

REPORT INFORMATION
  Report Type: Spontaneous
  Country: US (occurrence: US)
  Receive Date: 20130218
  Receipt Date: 20130218
  Transmission Date: 20140127
  Serious: No
  Sender: FDA-Public Use
  Company Number: US-BAYER-2013-020213

PATIENT
  Age: 83 Year
  Sex: Female
  Weight: 61 kg

DRUGS (3)
  1. ALEVE CAPLET/TABLET,MIDOL EXTENDED RELIEF CAPLET [Suspect]
     Dosage: 2 DF, QD
     Route: 048
     Dates: start: 20130202, end: 20130204
  2. CRESTOR [Concomitant]
  3. LUMIGAN [Concomitant]

REACTIONS (2)
  - Constipation [Recovered/Resolved]
  - Drug ineffective [None]
